FAERS Safety Report 9457820 (Version 2)
Quarter: 2013Q3

REPORT INFORMATION
  Report Type: Spontaneous
  Country: US (occurrence: None)
  Receive Date: 20130809
  Receipt Date: 20130927
  Transmission Date: 20140515
  Serious: Yes (Hospitalization)
  Sender: FDA-Public Use
  Company Number: 2013MPI00461

PATIENT
  Age: 33 Year
  Sex: Female
  Weight: 137.4 kg

DRUGS (13)
  1. BRENTUXIMAB VEDOTIN [Suspect]
     Indication: HODGKIN^S DISEASE
     Dosage: Q CYCLE
     Route: 042
     Dates: start: 20130531, end: 20130712
  2. DOXORUBICIN [Suspect]
     Indication: HODGKIN^S DISEASE
     Dosage: QCYCLE
     Route: 042
     Dates: start: 20130531, end: 20130712
  3. VINBLASTINE [Suspect]
     Indication: HODGKIN^S DISEASE
     Dosage: 15 MG INTRAVENOUS, Q CYCLCES
     Route: 042
     Dates: start: 20130531, end: 20130712
  4. DACARBAZINE (DACARBAZINE) [Suspect]
     Indication: HODGKIN^S DISEASE
     Dosage: Q CYCLE
     Route: 042
     Dates: start: 20130531, end: 20130712
  5. LORAZEPAM(LORAZEPAM) [Concomitant]
  6. ACYCLOVIR(ACICILOVIR) [Concomitant]
  7. ALLOPURINOL(ALLOPURINOL) [Concomitant]
  8. COMPAZINE(PROCHLORPERAZINE MALEATE) [Concomitant]
  9. DOXYCYCLINE HYCLATE(DOXYCYCLINE HYDROCHLORIDE) [Concomitant]
  10. ERYTHROMYCIN ACISTRATE(ERYTHROMYCIN ACISTRATE) [Concomitant]
  11. GABAPENTIN(GABAPENTIN) [Concomitant]
  12. NYSTATIN(NYSTATIN) [Concomitant]
  13. ZOFRAN(ODANSETRON HYDROCHLORIDE) [Concomitant]

REACTIONS (5)
  - Rash maculo-papular [None]
  - Herpes virus infection [None]
  - Herpes zoster [None]
  - Acute febrile neutrophilic dermatosis [None]
  - Folliculitis [None]
